FAERS Safety Report 4384612-X (Version None)
Quarter: 2004Q2

REPORT INFORMATION
  Report Type: 
  Country: None (occurrence: None)
  Receive Date: 20040625
  Receipt Date: 20030612
  Transmission Date: 20050107
  Serious: No
  Sender: FDA-Public Use
  Company Number: US-BRISTOL-MYERS SQUIBB COMPANY-12299582

PATIENT
  Age: 76 Week
  Sex: Female
  Weight: 84 kg

DRUGS (5)
  1. SINEMET CR [Suspect]
     Indication: PARKINSON'S DISEASE
     Dosage: 50/200MG
     Route: 048
     Dates: start: 20010101
  2. MIRAPEX [Concomitant]
  3. SYNTHROID [Concomitant]
  4. HYDROCHLOROTHIAZIDE [Concomitant]
  5. MULTIVITAMIN [Concomitant]

REACTIONS (2)
  - ABASIA [None]
  - APHASIA [None]
